FAERS Safety Report 7963387-9 (Version None)
Quarter: 2011Q4

REPORT INFORMATION
  Report Type: 
  Country: None (occurrence: None)
  Receive Date: 20111205
  Receipt Date: 20111123
  Transmission Date: 20120403
  Serious: Yes (Other)
  Sender: FDA-Public Use
  Company Number: 1119549

PATIENT
  Age: 47 Year
  Sex: Male
  Weight: 62 kg

DRUGS (6)
  1. DOXORUBICIN HCL [Suspect]
     Indication: B-CELL LYMPHOMA
     Dosage: INTRAVENOUS (NOT OTHERWISE SPECIFIED)
     Route: 042
     Dates: start: 20110826
  2. VINCRISTINE SULFATE [Suspect]
     Indication: B-CELL LYMPHOMA
     Dosage: INTRAVENOUS (NOT OTHERWISE SPECIFIED)
     Route: 042
     Dates: start: 20110826
  3. MABTHERA [Suspect]
     Indication: B-CELL LYMPHOMA
     Dosage: INTRAVENOUS (NOT OTHERWISE SPECIFIED)
     Route: 042
     Dates: start: 20110826
  4. METHOTREXATE [Concomitant]
  5. CYCLOPHOSPHAMIDE [Suspect]
     Indication: B-CELL LYMPHOMA
     Dosage: INTRAVENOUS (NOT OTHERWISE SPECIFIED)
     Route: 042
     Dates: start: 20110826
  6. CORTANYL [Suspect]
     Indication: B-CELL LYMPHOMA
     Dosage: ORAL
     Route: 048
     Dates: start: 20110826

REACTIONS (2)
  - CELL DEATH [None]
  - HEPATITIS B [None]
